FAERS Safety Report 5322449-5 (Version None)
Quarter: 2007Q2

REPORT INFORMATION
  Report Type: 
  Country: None (occurrence: None)
  Receive Date: 20070511
  Receipt Date: 20070508
  Transmission Date: 20071010
  Serious: Yes (Other)
  Sender: FDA-Public Use
  Company Number: DE-ASTRAZENECA-2007AC00824

PATIENT
  Sex: Female

DRUGS (2)
  1. GEFITINIB [Suspect]
     Indication: NEOPLASM MALIGNANT
     Route: 048
  2. TAMOXIFEN CITRATE [Concomitant]
     Indication: NEOPLASM MALIGNANT
     Route: 048

REACTIONS (3)
  - DIARRHOEA [None]
  - MUCOSAL INFLAMMATION [None]
  - PERFORMANCE STATUS DECREASED [None]
